FAERS Safety Report 5259348-3 (Version None)
Quarter: 2007Q1

REPORT INFORMATION
  Report Type: 
  Country: None (occurrence: None)
  Receive Date: 20070302
  Receipt Date: 20070226
  Transmission Date: 20070707
  Serious: Yes (Other)
  Sender: FDA-Public Use
  Company Number: GXKR2007DE01934

PATIENT
  Age: 59 Year
  Sex: Male
  Weight: 79 kg

DRUGS (7)
  1. METOHEXAL COMP (NGX)(HYDROCHLOROTHIAZIDE, METOPROLOL) TABLET [Suspect]
     Indication: HYPERTENSION
     Dosage: ORAL
     Route: 048
     Dates: start: 20061031
  2. FLUOXETINE [Concomitant]
  3. ZOLPIDEM TARTRATE [Concomitant]
  4. MIRTAZAPINE [Concomitant]
  5. CLAVERSAL (MESALAZINE) [Concomitant]
  6. LOPERAMIDE HCL [Concomitant]
  7. MUCOFALK (PSYLLIUM HYDROPHILIC MUCILLOID) [Concomitant]

REACTIONS (4)
  - ALANINE AMINOTRANSFERASE INCREASED [None]
  - BLOOD ALKALINE PHOSPHATASE INCREASED [None]
  - GAMMA-GLUTAMYLTRANSFERASE INCREASED [None]
  - TRANSAMINASES INCREASED [None]
